FAERS Safety Report 4521097-4 (Version None)
Quarter: 2004Q4

REPORT INFORMATION
  Report Type: 
  Country: None (occurrence: None)
  Receive Date: 20041203
  Receipt Date: 20041125
  Transmission Date: 20050328
  Serious: Yes (Hospitalization)
  Sender: FDA-Public Use
  Company Number: TCI2004A04381

PATIENT
  Age: 70 Year
  Sex: Male

DRUGS (1)
  1. ACTOS [Suspect]
     Indication: DIABETES MELLITUS
     Dosage: 30 MG (30 MG, 1 D)
     Route: 048
     Dates: start: 20040726, end: 20041025

REACTIONS (4)
  - ATRIAL FIBRILLATION [None]
  - COUGH [None]
  - OEDEMA [None]
  - PLEURAL EFFUSION [None]
